FAERS Safety Report 10013541 (Version 1)
Quarter: 2014Q1

REPORT INFORMATION
  Report Type: Spontaneous
  Country: FR (occurrence: FR)
  Receive Date: 20140315
  Receipt Date: 20140315
  Transmission Date: 20141002
  Serious: Yes (Other)
  Sender: FDA-Public Use
  Company Number: FR-ABBVIE-14P-056-1210923-00

PATIENT
  Age: 22 Year
  Sex: Female

DRUGS (6)
  1. NORVIR [Suspect]
     Indication: EXPOSURE TO COMMUNICABLE DISEASE
     Route: 048
     Dates: start: 20140106, end: 20140116
  2. NORVIR [Suspect]
     Indication: EXPOSURE TO COMMUNICABLE DISEASE
     Route: 048
     Dates: start: 20140120, end: 20140130
  3. TRUVADA [Suspect]
     Indication: EXPOSURE TO COMMUNICABLE DISEASE
     Dates: start: 20140106, end: 20140131
  4. TRUVADA [Suspect]
     Indication: EXPOSURE TO COMMUNICABLE DISEASE
  5. PREZISTA [Suspect]
     Indication: EXPOSURE TO COMMUNICABLE DISEASE
     Dates: start: 20140106, end: 20140116
  6. PREZISTA [Suspect]
     Indication: EXPOSURE TO COMMUNICABLE DISEASE
     Dates: start: 20140120, end: 20140130

REACTIONS (9)
  - Conjunctivitis [Recovered/Resolved]
  - Pyrexia [Recovered/Resolved]
  - Skin disorder [Recovering/Resolving]
  - Visual impairment [Unknown]
  - Rash maculo-papular [Recovered/Resolved]
  - Face oedema [Recovered/Resolved]
  - Pruritus generalised [Recovering/Resolving]
  - Rash maculo-papular [Recovering/Resolving]
  - Face oedema [Unknown]
